FAERS Safety Report 4824850-2 (Version None)
Quarter: 2005Q4

REPORT INFORMATION
  Report Type: 
  Country: None (occurrence: None)
  Receive Date: 20051012
  Receipt Date: 20050624
  Transmission Date: 20060501
  Serious: No
  Sender: FDA-Public Use
  Company Number: 2005S1000148

PATIENT
  Age: 48 Year
  Sex: 0

DRUGS (1)
  1. CUBICIN [Suspect]
     Dosage: IV
     Route: 042

REACTIONS (1)
  - ARTHRALGIA [None]
